FAERS Safety Report 10664204 (Version 1)
Quarter: 2014Q4

REPORT INFORMATION
  Report Type: Spontaneous
  Country: US (occurrence: None)
  Receive Date: 20141218
  Receipt Date: 20141218
  Transmission Date: 20150529
  Serious: Yes (Hospitalization)
  Sender: FDA-Public Use
  Company Number: None

PATIENT
  Age: 2 Year
  Sex: Male
  Weight: 12.3 kg

DRUGS (4)
  1. DEXAMETHASONE. [Suspect]
     Active Substance: DEXAMETHASONE
     Dates: end: 20141204
  2. DAUNORUBICIN [Suspect]
     Active Substance: DAUNORUBICIN
     Dates: end: 20031203
  3. VINCRISTINE SULFATE. [Suspect]
     Active Substance: VINCRISTINE SULFATE
     Dates: end: 20141203
  4. ONCASPAR [Suspect]
     Active Substance: PEGASPARGASE
     Dosage: 2800 IU
     Dates: end: 20141129

REACTIONS (4)
  - Blood bilirubin increased [None]
  - Bilirubin conjugated increased [None]
  - Venoocclusive disease [None]
  - Ascites [None]

NARRATIVE: CASE EVENT DATE: 20141210
